FAERS Safety Report 23482624 (Version 2)
Quarter: 2024Q1

REPORT INFORMATION
  Report Type: Spontaneous
  Country: AR (occurrence: AR)
  Receive Date: 20240205
  Receipt Date: 20240304
  Transmission Date: 20240410
  Serious: Yes (Other)
  Sender: FDA-Public Use
  Company Number: AR-MYLANLABS-2023M1136867

PATIENT
  Age: 54 Year
  Sex: Female

DRUGS (1)
  1. CLOZAPINE [Suspect]
     Active Substance: CLOZAPINE
     Indication: Product used for unknown indication
     Dosage: UNK
     Route: 065
     Dates: start: 20231130

REACTIONS (6)
  - Neutropenia [Recovered/Resolved]
  - Monocyte count increased [Recovered/Resolved]
  - Haematocrit decreased [Recovered/Resolved]
  - Red blood cell count decreased [Recovered/Resolved]
  - Lymphocyte count increased [Not Recovered/Not Resolved]
  - Eosinophil count increased [Recovered/Resolved]

NARRATIVE: CASE EVENT DATE: 20231220
